FAERS Safety Report 5794174-8 (Version None)
Quarter: 2008Q2

REPORT INFORMATION
  Report Type: 
  Country: None (occurrence: None)
  Receive Date: 20080627
  Receipt Date: 20080617
  Transmission Date: 20081010
  Serious: Yes (Other)
  Sender: FDA-Public Use
  Company Number: US-PFIZER INC-2008050816

PATIENT
  Age: 54 Year
  Sex: Male

DRUGS (3)
  1. DILANTIN [Suspect]
  2. PHENYTOIN [Interacting]
  3. PRILOSEC [Interacting]

REACTIONS (4)
  - CONVULSION [None]
  - DRUG INTERACTION [None]
  - DRUG LEVEL BELOW THERAPEUTIC [None]
  - LOSS OF CONSCIOUSNESS [None]
